FAERS Safety Report 18080331 (Version 10)
Quarter: 2020Q4

REPORT INFORMATION
  Report Type: Report from Study
  Country: ES (occurrence: ES)
  Receive Date: 20200728
  Receipt Date: 20201215
  Transmission Date: 20210113
  Serious: Yes (Death, Life-Threatening, Hospitalization)
  Sender: FDA-Public Use
  Company Number: ES-EISAI MEDICAL RESEARCH-EC-2020-077944

PATIENT
  Age: 12 Year
  Sex: Female
  Weight: 16 kg

DRUGS (8)
  1. SALMETEROL/FLUTICASONE PROPIONATE [Concomitant]
     Active Substance: FLUTICASONE PROPIONATE\SALMETEROL XINAFOATE
     Route: 055
     Dates: start: 20170101
  2. PERAMPANEL [Suspect]
     Active Substance: PERAMPANEL
     Route: 048
     Dates: start: 20200723, end: 20200729
  3. PERAMPANEL [Suspect]
     Active Substance: PERAMPANEL
     Route: 048
     Dates: start: 20200710, end: 20200716
  4. PERAMPANEL [Suspect]
     Active Substance: PERAMPANEL
     Route: 048
     Dates: start: 20200717, end: 20200722
  5. VALPROIC ACID. [Concomitant]
     Active Substance: VALPROIC ACID
     Route: 048
     Dates: start: 20081030
  6. PERAMPANEL [Suspect]
     Active Substance: PERAMPANEL
     Indication: EPILEPSY
     Route: 048
     Dates: start: 20200702, end: 20200709
  7. LEVETIRACETAM. [Concomitant]
     Active Substance: LEVETIRACETAM
     Route: 048
     Dates: start: 20130221
  8. CLOBAZAM. [Concomitant]
     Active Substance: CLOBAZAM
     Dosage: 5-2, 5-5MG
     Route: 048
     Dates: start: 20131009

REACTIONS (1)
  - Pneumonia [Fatal]

NARRATIVE: CASE EVENT DATE: 20200723
